FAERS Safety Report 7119578-2 (Version None)
Quarter: 2010Q4

REPORT INFORMATION
  Report Type: 
  Country: None (occurrence: None)
  Receive Date: 20101123
  Receipt Date: 20101119
  Transmission Date: 20110411
  Serious: Yes (Death, Other)
  Sender: FDA-Public Use
  Company Number: US-CELGENEUS-163-21880-10101975

PATIENT
  Sex: Male

DRUGS (2)
  1. REVLIMID [Suspect]
     Indication: MULTIPLE MYELOMA
     Route: 048
     Dates: start: 20100701, end: 20101001
  2. DEXAMETHASONE [Concomitant]
     Route: 065
     Dates: start: 20100701, end: 20101001

REACTIONS (2)
  - DEEP VEIN THROMBOSIS [None]
  - PORTAL VEIN THROMBOSIS [None]
